FAERS Safety Report 4912759-5 (Version None)
Quarter: 2006Q1

REPORT INFORMATION
  Report Type: 
  Country: None (occurrence: None)
  Receive Date: 20060113
  Receipt Date: 20050128
  Transmission Date: 20060701
  Serious: Yes (Other)
  Sender: FDA-Public Use
  Company Number: HQWYE986131JAN05

PATIENT
  Age: 57 Year
  Sex: Female

DRUGS (3)
  1. PREMPRO [Suspect]
     Indication: HORMONE REPLACEMENT THERAPY
     Dosage: ORAL
     Route: 048
     Dates: start: 19970101
  2. PREMARIN [Suspect]
     Dates: start: 20020101
  3. PROMETRIUM [Suspect]
     Dates: start: 20020101, end: 20020101

REACTIONS (1)
  - BREAST CANCER [None]
